FAERS Safety Report 9248378 (Version 1)
Quarter: 2013Q1

REPORT INFORMATION
  Report Type: Spontaneous
  Country: US (occurrence: None)
  Receive Date: 20130305
  Receipt Date: 20130305
  Transmission Date: 20140127
  Serious: Yes (Other)
  Sender: FDA-Public Use
  Company Number: 163-21880-12053480

PATIENT
  Age: 74 Year
  Sex: Male

DRUGS (10)
  1. REVLIMID [Suspect]
     Indication: PLASMA CELL MYELOMA
     Dosage: 21 IN 21 D
     Route: 048
     Dates: start: 20120426, end: 2012
  2. DEXAMETHASONE (DEXAMETHASONE) [Concomitant]
  3. LIPITOR (ATORVASTATIN) [Concomitant]
  4. AMLODIPINE BESY-BENAZEPRIL HCL (AMLODIPINE BESYLATE W/ BENZAEPRIL HYDROCHLOR.) [Concomitant]
  5. CALCIUM CARBONATE (CALCIUM CARBONATE) [Concomitant]
  6. ASPIRIN LOW DOSE (ACETYLSALICYLIC ACID) [Concomitant]
  7. VITAMIN C [Concomitant]
  8. VITAMIN D (ERGOCALCIFEROL) [Concomitant]
  9. IRON (IRON) [Concomitant]
  10. MAGNESIUM ASPARTATE (MAGNESIUM ASPARTATE) [Concomitant]

REACTIONS (1)
  - Rash [None]
